FAERS Safety Report 4509009-0 (Version None)
Quarter: 2004Q4

REPORT INFORMATION
  Report Type: 
  Country: None (occurrence: None)
  Receive Date: 20041123
  Receipt Date: 20041111
  Transmission Date: 20050328
  Serious: Yes (Hospitalization)
  Sender: FDA-Public Use
  Company Number: US-BRISTOL-MYERS SQUIBB COMPANY-12763793

PATIENT
  Age: 52 Year
  Sex: Female
  Weight: 79 kg

DRUGS (12)
  1. ERBITUX [Suspect]
     Indication: COLON CANCER METASTATIC
     Dosage: ADDITIONAL LOT #03C00243 EXPIRATION DATE APRIL 2006.
     Route: 042
     Dates: start: 20040908, end: 20040908
  2. ANZEMET [Concomitant]
     Indication: PREMEDICATION
     Route: 042
     Dates: start: 20040908, end: 20040908
  3. BENADRYL [Concomitant]
     Indication: PREMEDICATION
     Route: 042
     Dates: start: 20040908, end: 20040908
  4. DECADRON [Concomitant]
     Indication: PREMEDICATION
     Route: 042
     Dates: start: 20040908, end: 20040908
  5. ADVIL [Concomitant]
     Indication: PAIN
  6. DARVOCET [Concomitant]
     Indication: PAIN
  7. DILAUDID [Concomitant]
     Indication: PAIN
  8. LIDODERM PATCH [Concomitant]
     Indication: PAIN
  9. OXY-IR [Concomitant]
     Indication: PAIN
  10. PERCOCET [Concomitant]
     Indication: PAIN
  11. TYLOX [Concomitant]
     Indication: PAIN
  12. MULTIVITAMIN [Concomitant]

REACTIONS (6)
  - ANXIETY [None]
  - BACK PAIN [None]
  - CHEST PAIN [None]
  - CONVULSION [None]
  - FEELING HOT [None]
  - INFUSION RELATED REACTION [None]
